FAERS Safety Report 9674435 (Version 2)
Quarter: 2014Q1

REPORT INFORMATION
  Report Type: Spontaneous
  Country: US (occurrence: US)
  Receive Date: 20131107
  Receipt Date: 20140129
  Transmission Date: 20141002
  Serious: No
  Sender: FDA-Public Use
  Company Number: US-009507513-1310USA010335

PATIENT
  Sex: Female

DRUGS (1)
  1. DULERA [Suspect]
     Dosage: 200 MCG/ 5 MCG, TWO PUFFS, TWICE DAILY
     Route: 055
     Dates: start: 201202

REACTIONS (4)
  - Throat tightness [Unknown]
  - Asthma [Unknown]
  - Drug dose omission [Unknown]
  - Product quality issue [Unknown]
